FAERS Safety Report 17549150 (Version 1)
Quarter: 2020Q1

REPORT INFORMATION
  Report Type: Report from Study
  Country: CA (occurrence: CA)
  Receive Date: 20200317
  Receipt Date: 20200317
  Transmission Date: 20200409
  Serious: Yes (Other)
  Sender: FDA-Public Use
  Company Number: CA-TEVA-2020-CA-1201631

PATIENT
  Age: 47 Year
  Sex: Female

DRUGS (2)
  1. METHOTREXATE. [Suspect]
     Active Substance: METHOTREXATE
     Indication: PRODUCT USED FOR UNKNOWN INDICATION
     Route: 065
  2. NEORAL [Suspect]
     Active Substance: CYCLOSPORINE
     Indication: PSORIASIS
     Route: 048

REACTIONS (7)
  - Tremor [Unknown]
  - Hepatic enzyme increased [Unknown]
  - Influenza [Unknown]
  - Hepatic cirrhosis [Unknown]
  - Hepatic fibrosis [Unknown]
  - Drug intolerance [Unknown]
  - Skin lesion [Unknown]
